FAERS Safety Report 14089054 (Version 1)
Quarter: 2017Q4

REPORT INFORMATION
  Report Type: Spontaneous
  Country: FR (occurrence: FR)
  Receive Date: 20171014
  Receipt Date: 20171014
  Transmission Date: 20180321
  Serious: Yes (Hospitalization)
  Sender: FDA-Public Use
  Company Number: FR-ROCHE-2002779

PATIENT
  Age: 53 Year
  Sex: Female

DRUGS (6)
  1. XELODA [Suspect]
     Active Substance: CAPECITABINE
     Indication: ADENOCARCINOMA OF COLON
     Route: 042
     Dates: start: 201606
  2. SANDOSTATINE [Concomitant]
     Active Substance: OCTREOTIDE ACETATE
     Route: 042
  3. CAMPTO [Suspect]
     Active Substance: IRINOTECAN
     Indication: ADENOCARCINOMA OF COLON
     Route: 042
     Dates: start: 201606
  4. AVASTIN [Suspect]
     Active Substance: BEVACIZUMAB
     Indication: ADENOCARCINOMA OF COLON
     Route: 042
     Dates: start: 201606
  5. SPASFON (FRANCE) [Concomitant]
     Active Substance: PHLOROGLUCINOL\1,3,5-TRIMETHOXYBENZENE
     Route: 065
  6. DUROGESIC [Concomitant]
     Active Substance: FENTANYL
     Route: 065

REACTIONS (2)
  - Visual acuity reduced [Recovering/Resolving]
  - Visual field tests abnormal [Recovering/Resolving]

NARRATIVE: CASE EVENT DATE: 20170721
